FAERS Safety Report 8957037 (Version 1)
Quarter: 2012Q4

REPORT INFORMATION
  Report Type: 
  Country: US (occurrence: US)
  Receive Date: 20121210
  Receipt Date: 20121210
  Transmission Date: 20130627
  Serious: Yes (Hospitalization)
  Sender: FDA-Public Use
  Company Number: US-009507513-1212USA001471

PATIENT
  Sex: Male

DRUGS (1)
  1. INVANZ [Suspect]
     Dosage: UNK
     Route: 042
     Dates: start: 20121202

REACTIONS (2)
  - Poor quality sleep [Not Recovered/Not Resolved]
  - Malaise [Not Recovered/Not Resolved]
